FAERS Safety Report 8478401 (Version 4)
Quarter: 2012Q4

REPORT INFORMATION
  Report Type: 
  Country: US (occurrence: US)
  Receive Date: 20120327
  Receipt Date: 20121226
  Transmission Date: 20130627
  Serious: Yes (Hospitalization)
  Sender: FDA-Public Use
  Company Number: US-JNJFOC-20120310888

PATIENT
  Sex: Male

DRUGS (2)
  1. STELARA [Suspect]
     Indication: PSORIASIS
     Route: 058
     Dates: start: 20110824, end: 20120321
  2. METHOTREXATE [Concomitant]
     Route: 065

REACTIONS (2)
  - Erythrodermic psoriasis [Not Recovered/Not Resolved]
  - Arthralgia [Unknown]
